FAERS Safety Report 7211519-2 (Version None)
Quarter: 2010Q4

REPORT INFORMATION
  Report Type: 
  Country: None (occurrence: None)
  Receive Date: 20101228
  Receipt Date: 20101214
  Transmission Date: 20110411
  Serious: Yes (Hospitalization)
  Sender: FDA-Public Use
  Company Number: 023748

PATIENT
  Sex: Female

DRUGS (4)
  1. CIMZIA [Suspect]
     Dosage: 400 MG 1X/3 WEEKS SUBCUTANEOUS
     Route: 058
     Dates: start: 20070313, end: 20080615
  2. HUMIRA [Suspect]
     Dosage: SUBCUTANEOUS
     Route: 058
     Dates: start: 20060301, end: 20061001
  3. IMUREL (IMUREL) [Suspect]
     Dosage: ORAL, 150 MG, ORAL
     Route: 048
     Dates: end: 20040101
  4. IMUREL (IMUREL) [Suspect]
     Dosage: ORAL, 150 MG, ORAL
     Route: 048
     Dates: start: 20060518, end: 20070313

REACTIONS (5)
  - CONDITION AGGRAVATED [None]
  - CROHN'S DISEASE [None]
  - DRUG INEFFECTIVE [None]
  - ERYTHEMA [None]
  - TUBERCULOSIS GASTROINTESTINAL [None]
